FAERS Safety Report 22016130 (Version 2)
Quarter: 2023Q1

REPORT INFORMATION
  Report Type: Spontaneous
  Country: US (occurrence: US)
  Receive Date: 20230221
  Receipt Date: 20230307
  Transmission Date: 20230417
  Serious: Yes (Hospitalization)
  Sender: FDA-Public Use
  Company Number: US-NIPPON SHINYAKU-NIP-2023-000007

PATIENT
  Age: 10 Year
  Sex: Male
  Weight: 55.79 kg

DRUGS (9)
  1. VILTEPSO [Suspect]
     Active Substance: VILTOLARSEN
     Indication: Duchenne muscular dystrophy
     Dosage: 4250 MG, QWK
     Route: 042
     Dates: start: 20210914
  2. VILTEPSO [Suspect]
     Active Substance: VILTOLARSEN
     Dosage: 4250 MG, QWK
     Route: 042
     Dates: start: 20230131, end: 20230131
  3. VILTEPSO [Suspect]
     Active Substance: VILTOLARSEN
     Dosage: UNK UNK, QWK
     Route: 042
     Dates: start: 20230210
  4. ALBUTEROL SULFATE [Concomitant]
     Active Substance: ALBUTEROL SULFATE
     Indication: Product used for unknown indication
     Dosage: 2 PUFFS, Q4H
     Route: 055
  5. LISINOPRIL [Concomitant]
     Active Substance: LISINOPRIL
     Indication: Product used for unknown indication
     Dosage: 5 MG
     Route: 048
  6. BENADRYL CHILDRENS ALLERGY/COLD [Concomitant]
     Indication: Product used for unknown indication
     Dosage: 12.5 MG
     Route: 048
  7. ZYRTEC [Concomitant]
     Active Substance: CETIRIZINE HYDROCHLORIDE
     Indication: Product used for unknown indication
     Dosage: 5 MG, QD
     Route: 048
  8. SOLU-CORTEF [Concomitant]
     Active Substance: HYDROCORTISONE SODIUM SUCCINATE
     Indication: Product used for unknown indication
     Dosage: 100 MG
     Route: 030
  9. VAMOROLONE [Concomitant]
     Active Substance: VAMOROLONE
     Indication: Product used for unknown indication
     Dosage: UNK, QD
     Route: 065

REACTIONS (2)
  - Nausea [Recovered/Resolved]
  - Vomiting [Recovered/Resolved]

NARRATIVE: CASE EVENT DATE: 20230203
